FAERS Safety Report 8958344 (Version 1)
Quarter: 2012Q4

REPORT INFORMATION
  Report Type: 
  Country: US (occurrence: US)
  Receive Date: 20121210
  Receipt Date: 20121210
  Transmission Date: 20130627
  Serious: Yes (Hospitalization)
  Sender: FDA-Public Use
  Company Number: US-GLAXOSMITHKLINE-A0775120A

PATIENT
  Age: 46 Year
  Sex: Male

DRUGS (1)
  1. AVANDIA [Suspect]
     Indication: DIABETES MELLITUS
     Dosage: 8MG Per day
     Route: 048
     Dates: start: 2003, end: 20080301

REACTIONS (6)
  - Cardiac disorder [Not Recovered/Not Resolved]
  - Depression [Unknown]
  - Angina pectoris [Unknown]
  - Arteriospasm coronary [Unknown]
  - Coronary artery disease [Unknown]
  - Condition aggravated [Unknown]
